FAERS Safety Report 5027939-0 (Version None)
Quarter: 2006Q2

REPORT INFORMATION
  Report Type: 
  Country: None (occurrence: None)
  Receive Date: 20060501
  Receipt Date: 20060306
  Transmission Date: 20061013
  Serious: Yes (Other)
  Sender: FDA-Public Use
  Company Number: 200612160US

PATIENT
  Age: 77 Year
  Sex: Male
  Weight: 72.72 kg

DRUGS (4)
  1. KETEK [Suspect]
     Indication: UPPER RESPIRATORY TRACT INFECTION
     Dosage: 800 MG QD PO
     Route: 048
     Dates: start: 20060124, end: 20060130
  2. MONTELUKAST SODIUM [Concomitant]
  3. HYDROCHLOROTHIAZIDE, LOSARTAN POTASSIUM (HYZAAR) [Concomitant]
  4. TAMSULOSIN CETRIZINE HYDROCHLORIDE (ZYRTEC) [Concomitant]

REACTIONS (1)
  - HEPATIC ENZYME INCREASED [None]
